FAERS Safety Report 7101576-6 (Version None)
Quarter: 2010Q4

REPORT INFORMATION
  Report Type: 
  Country: None (occurrence: None)
  Receive Date: 20101115
  Receipt Date: 20101111
  Transmission Date: 20110411
  Serious: Yes (Other)
  Sender: FDA-Public Use
  Company Number: JP-PFIZER INC-2010131305

PATIENT
  Age: 73 Year
  Sex: Male

DRUGS (1)
  1. DETRUSITOL [Suspect]
     Dosage: 4MG DAILY
     Route: 048
     Dates: start: 20090901, end: 20090930

REACTIONS (2)
  - HAEMATURIA [None]
  - POLLAKIURIA [None]
